FAERS Safety Report 8286521-2 (Version None)
Quarter: 2012Q2

REPORT INFORMATION
  Report Type: 
  Country: None (occurrence: None)
  Receive Date: 20120416
  Receipt Date: 20120403
  Transmission Date: 20120825
  Serious: Yes (Death, Hospitalization, Other)
  Sender: FDA-Public Use
  Company Number: US-PFIZER INC-2012092383

PATIENT
  Sex: Male

DRUGS (2)
  1. MS CONTIN [Suspect]
     Indication: PAIN
     Dosage: 100 MG, 2X/DAY
     Route: 048
     Dates: start: 20110201
  2. MORPHINE SULFATE [Suspect]
     Indication: PAIN
     Dosage: 30 MG, EVERY 4-6 HOURS AS NEEDED
     Route: 048
     Dates: start: 20110201

REACTIONS (5)
  - DRUG ABUSE [None]
  - MULTIPLE DRUG OVERDOSE [None]
  - RESPIRATORY DEPRESSION [None]
  - CONFUSIONAL STATE [None]
  - PROSTATE CANCER METASTATIC [None]
